FAERS Safety Report 4422381-5 (Version None)
Quarter: 2004Q3

REPORT INFORMATION
  Report Type: 
  Country: None (occurrence: None)
  Receive Date: 20040804
  Receipt Date: 20040714
  Transmission Date: 20050211
  Serious: Yes (Disabling, Other)
  Sender: FDA-Public Use
  Company Number: USA040772558

PATIENT
  Age: 36 Year
  Sex: Male

DRUGS (1)
  1. LENTE ILETIN II (PORK) [Suspect]
     Dates: start: 19620101, end: 19930101

REACTIONS (3)
  - BLINDNESS [None]
  - DIALYSIS [None]
  - RENAL FAILURE [None]
